FAERS Safety Report 5014785-7 (Version None)
Quarter: 2006Q2

REPORT INFORMATION
  Report Type: 
  Country: None (occurrence: None)
  Receive Date: 20060424
  Receipt Date: 20051202
  Transmission Date: 20061013
  Serious: Yes (Other)
  Sender: FDA-Public Use
  Company Number: WAES 0512USA00375

PATIENT
  Age: 34 Year
  Sex: Female
  Weight: 48.0813 kg

DRUGS (1)
  1. SINGULAIR [Suspect]
     Indication: ASTHMA
     Dosage: 10 MG/DAILY/PO
     Route: 048
     Dates: start: 20051212

REACTIONS (2)
  - MUSCLE SPASMS [None]
  - URTICARIA [None]
